FAERS Safety Report 6866114-1 (Version None)
Quarter: 2010Q3

REPORT INFORMATION
  Report Type: 
  Country: None (occurrence: None)
  Receive Date: 20100722
  Receipt Date: 20100719
  Transmission Date: 20110219
  Serious: Yes (Death, Life-Threatening)
  Sender: FDA-Public Use
  Company Number: FR-ASTRAZENECA-2010SE33492

PATIENT
  Age: 47 Year
  Sex: Female

DRUGS (13)
  1. NEXIUM [Suspect]
     Route: 048
     Dates: start: 20091101
  2. ALIMTA [Suspect]
     Route: 042
     Dates: start: 20091208, end: 20091208
  3. CISPLATIN MYLAN [Suspect]
     Route: 042
     Dates: start: 20091208, end: 20091208
  4. BIPROFENID [Suspect]
     Route: 048
     Dates: start: 20091101
  5. DI ANTALVIC [Suspect]
     Route: 048
     Dates: start: 20091101
  6. IMOVANE [Suspect]
     Route: 048
     Dates: start: 20091205
  7. CORTANCYL [Suspect]
     Route: 048
     Dates: start: 20091201, end: 20100104
  8. SPECIAFOLDINE [Suspect]
     Route: 048
     Dates: start: 20091203, end: 20100114
  9. DEXAMETHASONE [Concomitant]
     Dates: start: 20091207, end: 20091209
  10. EMEND [Concomitant]
     Dosage: 120 MG BEFORE CHEMOTHERAPY
     Dates: start: 20091208, end: 20091208
  11. ONDANSETRON MYLAN [Concomitant]
     Dosage: 8 MG BEFORE CHEMOTHERAPY
     Dates: start: 20091208, end: 20091208
  12. METOCLOPRAMIDE SANOFI AVENTIS [Concomitant]
     Dosage: 10 MG BEFORE CHEMOTHERAPY
     Dates: start: 20091208, end: 20091208
  13. VITAMINE B12 [Concomitant]
     Dates: start: 20091203, end: 20091203

REACTIONS (2)
  - DYSPNOEA [None]
  - PULMONARY FIBROSIS [None]
